FAERS Safety Report 8428110-2 (Version None)
Quarter: 2012Q2

REPORT INFORMATION
  Report Type: 
  Country: None (occurrence: None)
  Receive Date: 20120611
  Receipt Date: 20120606
  Transmission Date: 20120825
  Serious: Yes (Death)
  Sender: FDA-Public Use
  Company Number: US-ASTRAZENECA-2012SE28046

PATIENT
  Age: 35 Year
  Sex: Male
  Weight: 143.3 kg

DRUGS (10)
  1. XANAX [Concomitant]
     Indication: AGORAPHOBIA
  2. LAMICTAL [Concomitant]
     Indication: AFFECTIVE DISORDER
  3. ATACAND [Suspect]
     Indication: HYPERTENSION
     Route: 048
  4. TRAZODONE HCL [Concomitant]
     Indication: SLEEP DISORDER
  5. CYMBALTA [Concomitant]
     Indication: DEPRESSION
  6. XANAX [Concomitant]
     Indication: GENERALISED ANXIETY DISORDER
  7. SEROQUEL [Suspect]
     Indication: BIPOLAR DISORDER
     Route: 048
     Dates: start: 20110325
  8. XANAX [Concomitant]
     Indication: PANIC DISORDER
  9. AMBIEN [Concomitant]
     Indication: SLEEP DISORDER
  10. NEURONTIN [Concomitant]
     Indication: ARTHRALGIA

REACTIONS (2)
  - ARTERIOSCLEROSIS CORONARY ARTERY [None]
  - WEIGHT INCREASED [None]
